FAERS Safety Report 14100650 (Version 1)
Quarter: 2017Q4

REPORT INFORMATION
  Report Type: Spontaneous
  Country: US (occurrence: US)
  Receive Date: 20171017
  Receipt Date: 20171017
  Transmission Date: 20180321
  Serious: No
  Sender: FDA-Public Use
  Company Number: US-CELGENEUS-USA-20171001599

PATIENT
  Age: 50 Year
  Sex: Female

DRUGS (2)
  1. OTEZLA [Suspect]
     Active Substance: APREMILAST
     Indication: PSORIATIC ARTHROPATHY
     Dosage: 60 MILLIGRAM
     Route: 048
     Dates: start: 2015
  2. PLEXUS (CISAPRIDE) [Interacting]
     Active Substance: CISAPRIDE
     Indication: ANTIINFLAMMATORY THERAPY
     Route: 065
     Dates: start: 201703, end: 2017

REACTIONS (3)
  - Drug effect decreased [Unknown]
  - Psoriatic arthropathy [Not Recovered/Not Resolved]
  - Drug interaction [Not Recovered/Not Resolved]

NARRATIVE: CASE EVENT DATE: 201708
